FAERS Safety Report 16538673 (Version 6)
Quarter: 2020Q1

REPORT INFORMATION
  Report Type: Spontaneous
  Country: JP (occurrence: JP)
  Receive Date: 20190708
  Receipt Date: 20200225
  Transmission Date: 20200409
  Serious: Yes (Other)
  Sender: FDA-Public Use
  Company Number: JP-BEH-2019103699

PATIENT
  Age: 13 Year
  Sex: Male
  Weight: 52 kg

DRUGS (103)
  1. IDELVION [Suspect]
     Active Substance: COAGULATION FACTOR IX RECOMBINANT HUMAN
     Dosage: UNK
     Route: 042
     Dates: start: 20181213, end: 20181213
  2. NOVACT [Concomitant]
     Dosage: 2500 INTERNATIONAL UNIT, TIW
     Route: 065
     Dates: start: 20180806, end: 20180914
  3. IDELVION [Suspect]
     Active Substance: COAGULATION FACTOR IX RECOMBINANT HUMAN
     Dosage: 500 INTERNATIONAL UNIT, SINGLE
     Route: 042
     Dates: start: 20181102, end: 20181102
  4. IDELVION [Suspect]
     Active Substance: COAGULATION FACTOR IX RECOMBINANT HUMAN
     Dosage: 500 INTERNATIONAL UNIT, SINGLE
     Route: 042
     Dates: start: 20181102, end: 20181102
  5. IDELVION [Suspect]
     Active Substance: COAGULATION FACTOR IX RECOMBINANT HUMAN
     Dosage: 500 INTERNATIONAL UNIT, SINGLE
     Route: 042
     Dates: start: 20181130, end: 20181130
  6. IDELVION [Suspect]
     Active Substance: COAGULATION FACTOR IX RECOMBINANT HUMAN
     Dosage: 2000 INTERNATIONAL UNIT, SINGLE
     Route: 042
     Dates: start: 20181213, end: 20181213
  7. IDELVION [Suspect]
     Active Substance: COAGULATION FACTOR IX RECOMBINANT HUMAN
     Dosage: 500 INTERNATIONAL UNIT, SINGLE
     Route: 042
     Dates: start: 20181220, end: 20181220
  8. IDELVION [Suspect]
     Active Substance: COAGULATION FACTOR IX RECOMBINANT HUMAN
     Dosage: 500 INTERNATIONAL UNIT, SINGLE
     Route: 042
     Dates: start: 20181226, end: 20181226
  9. IDELVION [Suspect]
     Active Substance: COAGULATION FACTOR IX RECOMBINANT HUMAN
     Dosage: 2000 INTERNATIONAL UNIT, SINGLE
     Route: 042
     Dates: start: 20190112, end: 20190112
  10. IDELVION [Suspect]
     Active Substance: COAGULATION FACTOR IX RECOMBINANT HUMAN
     Dosage: 2000 INTERNATIONAL UNIT, SINGLE
     Route: 042
     Dates: start: 20190119, end: 20190119
  11. IDELVION [Suspect]
     Active Substance: COAGULATION FACTOR IX RECOMBINANT HUMAN
     Dosage: 2000 INTERNATIONAL UNIT, SINGLE
     Route: 042
     Dates: start: 20190119, end: 20190119
  12. IDELVION [Suspect]
     Active Substance: COAGULATION FACTOR IX RECOMBINANT HUMAN
     Dosage: 1000 INTERNATIONAL UNIT, TOT
     Route: 042
     Dates: start: 20190125, end: 20190125
  13. IDELVION [Suspect]
     Active Substance: COAGULATION FACTOR IX RECOMBINANT HUMAN
     Dosage: 1000 INTERNATIONAL UNIT, TOT
     Route: 042
     Dates: start: 20190203, end: 20190203
  14. IDELVION [Suspect]
     Active Substance: COAGULATION FACTOR IX RECOMBINANT HUMAN
     Dosage: 2000 INTERNATIONAL UNIT, SINGLE
     Route: 042
     Dates: start: 20190211, end: 20190211
  15. IDELVION [Suspect]
     Active Substance: COAGULATION FACTOR IX RECOMBINANT HUMAN
     Dosage: 1000 INTERNATIONAL UNIT, TOT
     Route: 042
     Dates: start: 20190211, end: 20190211
  16. IDELVION [Suspect]
     Active Substance: COAGULATION FACTOR IX RECOMBINANT HUMAN
     Dosage: 1000 INTERNATIONAL UNIT, TOT
     Route: 042
     Dates: start: 20190301, end: 20190301
  17. IDELVION [Suspect]
     Active Substance: COAGULATION FACTOR IX RECOMBINANT HUMAN
     Dosage: 1000 INTERNATIONAL UNIT, TOT
     Route: 042
     Dates: start: 20190301, end: 20190301
  18. IDELVION [Suspect]
     Active Substance: COAGULATION FACTOR IX RECOMBINANT HUMAN
     Dosage: UNK
     Route: 042
     Dates: start: 20181226, end: 20181226
  19. IDELVION [Suspect]
     Active Substance: COAGULATION FACTOR IX RECOMBINANT HUMAN
     Indication: PROPHYLAXIS
     Dosage: 500 INTERNATIONAL UNIT, SINGLE
     Route: 042
     Dates: start: 20181002, end: 20181002
  20. IDELVION [Suspect]
     Active Substance: COAGULATION FACTOR IX RECOMBINANT HUMAN
     Dosage: 2000 INTERNATIONAL UNIT, SINGLE
     Route: 042
     Dates: start: 20181114, end: 20181114
  21. IDELVION [Suspect]
     Active Substance: COAGULATION FACTOR IX RECOMBINANT HUMAN
     Dosage: 500 INTERNATIONAL UNIT, SINGLE
     Route: 042
     Dates: start: 20181123, end: 20181123
  22. IDELVION [Suspect]
     Active Substance: COAGULATION FACTOR IX RECOMBINANT HUMAN
     Dosage: 2000 INTERNATIONAL UNIT, SINGLE
     Route: 042
     Dates: start: 20181226, end: 20181226
  23. IDELVION [Suspect]
     Active Substance: COAGULATION FACTOR IX RECOMBINANT HUMAN
     Dosage: 2000 INTERNATIONAL UNIT, SINGLE
     Route: 042
     Dates: start: 20190109, end: 20190109
  24. IDELVION [Suspect]
     Active Substance: COAGULATION FACTOR IX RECOMBINANT HUMAN
     Dosage: 2000 INTERNATIONAL UNIT, SINGLE
     Route: 042
     Dates: start: 20190125, end: 20190125
  25. IDELVION [Suspect]
     Active Substance: COAGULATION FACTOR IX RECOMBINANT HUMAN
     Dosage: 500 INTERNATIONAL UNIT, SINGLE
     Route: 042
     Dates: start: 20190222, end: 20190222
  26. IDELVION [Suspect]
     Active Substance: COAGULATION FACTOR IX RECOMBINANT HUMAN
     Dosage: 500 INTERNATIONAL UNIT, SINGLE
     Route: 042
     Dates: start: 20190222, end: 20190222
  27. IDELVION [Suspect]
     Active Substance: COAGULATION FACTOR IX RECOMBINANT HUMAN
     Indication: HAEMOSTASIS
     Dosage: 2000 INTERNATIONAL UNIT, SINGLE
     Route: 042
     Dates: start: 20181002, end: 20181002
  28. IDELVION [Suspect]
     Active Substance: COAGULATION FACTOR IX RECOMBINANT HUMAN
     Dosage: 500 INTERNATIONAL UNIT, SINGLE
     Route: 042
     Dates: start: 20181025, end: 20181025
  29. IDELVION [Suspect]
     Active Substance: COAGULATION FACTOR IX RECOMBINANT HUMAN
     Dosage: 2000 INTERNATIONAL UNIT, SINGLE
     Route: 042
     Dates: start: 20181029, end: 20181029
  30. IDELVION [Suspect]
     Active Substance: COAGULATION FACTOR IX RECOMBINANT HUMAN
     Dosage: 500 INTERNATIONAL UNIT, SINGLE
     Route: 042
     Dates: start: 20181029, end: 20181029
  31. IDELVION [Suspect]
     Active Substance: COAGULATION FACTOR IX RECOMBINANT HUMAN
     Dosage: 2000 INTERNATIONAL UNIT, SINGLE
     Route: 042
     Dates: start: 20181109, end: 20181109
  32. IDELVION [Suspect]
     Active Substance: COAGULATION FACTOR IX RECOMBINANT HUMAN
     Dosage: 2000 INTERNATIONAL UNIT, SINGLE
     Route: 042
     Dates: start: 20181114, end: 20181114
  33. IDELVION [Suspect]
     Active Substance: COAGULATION FACTOR IX RECOMBINANT HUMAN
     Dosage: 2000 INTERNATIONAL UNIT, SINGLE
     Route: 042
     Dates: start: 20181220, end: 20181220
  34. IDELVION [Suspect]
     Active Substance: COAGULATION FACTOR IX RECOMBINANT HUMAN
     Dosage: 500 INTERNATIONAL UNIT, SINGLE
     Route: 042
     Dates: start: 20190112, end: 20190112
  35. IDELVION [Suspect]
     Active Substance: COAGULATION FACTOR IX RECOMBINANT HUMAN
     Dosage: 500 INTERNATIONAL UNIT, SINGLE
     Route: 042
     Dates: start: 20190118, end: 20190118
  36. IDELVION [Suspect]
     Active Substance: COAGULATION FACTOR IX RECOMBINANT HUMAN
     Dosage: 1000 INTERNATIONAL UNIT, TOT
     Route: 042
     Dates: start: 20190210, end: 20190210
  37. IDELVION [Suspect]
     Active Substance: COAGULATION FACTOR IX RECOMBINANT HUMAN
     Dosage: 500 INTERNATIONAL UNIT, SINGLE
     Route: 042
     Dates: start: 20190222, end: 20190222
  38. IDELVION [Suspect]
     Active Substance: COAGULATION FACTOR IX RECOMBINANT HUMAN
     Dosage: 2000 INTERNATIONAL UNIT
     Route: 042
     Dates: start: 20190310, end: 20190310
  39. IDELVION [Suspect]
     Active Substance: COAGULATION FACTOR IX RECOMBINANT HUMAN
     Dosage: UNK
     Route: 042
     Dates: start: 20181213, end: 20181213
  40. IDELVION [Suspect]
     Active Substance: COAGULATION FACTOR IX RECOMBINANT HUMAN
     Dosage: UNK
     Route: 042
     Dates: start: 20181213, end: 20181213
  41. NOVACT [Concomitant]
     Dosage: 2500 INTERNATIONAL UNIT, 1 DAY
     Route: 065
     Dates: start: 20180917, end: 20180917
  42. IDELVION [Suspect]
     Active Substance: COAGULATION FACTOR IX RECOMBINANT HUMAN
     Dosage: 2000 INTERNATIONAL UNIT, SINGLE
     Route: 042
     Dates: start: 20181022, end: 20181022
  43. IDELVION [Suspect]
     Active Substance: COAGULATION FACTOR IX RECOMBINANT HUMAN
     Dosage: 2000 INTERNATIONAL UNIT, SINGLE
     Route: 042
     Dates: start: 20181025, end: 20181025
  44. IDELVION [Suspect]
     Active Substance: COAGULATION FACTOR IX RECOMBINANT HUMAN
     Dosage: 500 INTERNATIONAL UNIT, SINGLE
     Route: 042
     Dates: start: 20181029, end: 20181029
  45. IDELVION [Suspect]
     Active Substance: COAGULATION FACTOR IX RECOMBINANT HUMAN
     Dosage: 500 INTERNATIONAL UNIT, SINGLE
     Route: 042
     Dates: start: 20181213, end: 20181213
  46. IDELVION [Suspect]
     Active Substance: COAGULATION FACTOR IX RECOMBINANT HUMAN
     Dosage: 500 INTERNATIONAL UNIT, SINGLE
     Route: 042
     Dates: start: 20181213, end: 20181213
  47. IDELVION [Suspect]
     Active Substance: COAGULATION FACTOR IX RECOMBINANT HUMAN
     Dosage: 500 INTERNATIONAL UNIT, SINGLE
     Route: 042
     Dates: start: 20181220, end: 20181220
  48. IDELVION [Suspect]
     Active Substance: COAGULATION FACTOR IX RECOMBINANT HUMAN
     Dosage: 500 INTERNATIONAL UNIT, SINGLE
     Route: 042
     Dates: start: 20181226, end: 20181226
  49. IDELVION [Suspect]
     Active Substance: COAGULATION FACTOR IX RECOMBINANT HUMAN
     Dosage: 2000 INTERNATIONAL UNIT, SINGLE
     Route: 042
     Dates: start: 20190109, end: 20190109
  50. IDELVION [Suspect]
     Active Substance: COAGULATION FACTOR IX RECOMBINANT HUMAN
     Dosage: 500 INTERNATIONAL UNIT, SINGLE
     Route: 042
     Dates: start: 20190109, end: 20190109
  51. IDELVION [Suspect]
     Active Substance: COAGULATION FACTOR IX RECOMBINANT HUMAN
     Dosage: 500 INTERNATIONAL UNIT, SINGLE
     Route: 042
     Dates: start: 20190118, end: 20190118
  52. IDELVION [Suspect]
     Active Substance: COAGULATION FACTOR IX RECOMBINANT HUMAN
     Dosage: 1000 INTERNATIONAL UNIT, TOT
     Route: 042
     Dates: start: 20190203, end: 20190203
  53. IDELVION [Suspect]
     Active Substance: COAGULATION FACTOR IX RECOMBINANT HUMAN
     Dosage: 2000 INTERNATIONAL UNIT, SINGLE
     Route: 042
     Dates: start: 20190210, end: 20190210
  54. IDELVION [Suspect]
     Active Substance: COAGULATION FACTOR IX RECOMBINANT HUMAN
     Dosage: 2000 INTERNATIONAL UNIT, SINGLE
     Route: 042
     Dates: start: 20190222, end: 20190222
  55. IDELVION [Suspect]
     Active Substance: COAGULATION FACTOR IX RECOMBINANT HUMAN
     Dosage: 2000 INTERNATIONAL UNIT, SINGLE
     Route: 042
     Dates: start: 20190301, end: 20190301
  56. IDELVION [Suspect]
     Active Substance: COAGULATION FACTOR IX RECOMBINANT HUMAN
     Dosage: UNK
     Route: 042
     Dates: start: 20181213, end: 20181213
  57. IDELVION [Suspect]
     Active Substance: COAGULATION FACTOR IX RECOMBINANT HUMAN
     Indication: PROPHYLAXIS
     Dosage: 500 INTERNATIONAL UNIT, SINGLE
     Route: 042
     Dates: start: 20181002, end: 20181002
  58. IDELVION [Suspect]
     Active Substance: COAGULATION FACTOR IX RECOMBINANT HUMAN
     Dosage: 2000 INTERNATIONAL UNIT, SINGLE
     Route: 042
     Dates: start: 20181029, end: 20181029
  59. IDELVION [Suspect]
     Active Substance: COAGULATION FACTOR IX RECOMBINANT HUMAN
     Dosage: 2000 INTERNATIONAL UNIT, SINGLE
     Route: 042
     Dates: start: 20181102, end: 20181102
  60. IDELVION [Suspect]
     Active Substance: COAGULATION FACTOR IX RECOMBINANT HUMAN
     Dosage: 2000 INTERNATIONAL UNIT, SINGLE
     Route: 042
     Dates: start: 20181102, end: 20181102
  61. IDELVION [Suspect]
     Active Substance: COAGULATION FACTOR IX RECOMBINANT HUMAN
     Dosage: 500 INTERNATIONAL UNIT, SINGLE
     Route: 042
     Dates: start: 20181114, end: 20181114
  62. IDELVION [Suspect]
     Active Substance: COAGULATION FACTOR IX RECOMBINANT HUMAN
     Dosage: 2000 INTERNATIONAL UNIT, SINGLE
     Route: 042
     Dates: start: 20181123, end: 20181123
  63. IDELVION [Suspect]
     Active Substance: COAGULATION FACTOR IX RECOMBINANT HUMAN
     Dosage: 500 INTERNATIONAL UNIT, SINGLE
     Route: 042
     Dates: start: 20181123, end: 20181123
  64. IDELVION [Suspect]
     Active Substance: COAGULATION FACTOR IX RECOMBINANT HUMAN
     Dosage: 500 INTERNATIONAL UNIT, SINGLE
     Route: 042
     Dates: start: 20181130, end: 20181130
  65. IDELVION [Suspect]
     Active Substance: COAGULATION FACTOR IX RECOMBINANT HUMAN
     Dosage: 2000 INTERNATIONAL UNIT, SINGLE
     Route: 042
     Dates: start: 20181226, end: 20181226
  66. IDELVION [Suspect]
     Active Substance: COAGULATION FACTOR IX RECOMBINANT HUMAN
     Dosage: 2000 INTERNATIONAL UNIT, SINGLE
     Route: 042
     Dates: start: 20181109, end: 20181109
  67. IDELVION [Suspect]
     Active Substance: COAGULATION FACTOR IX RECOMBINANT HUMAN
     Dosage: 2000 INTERNATIONAL UNIT, SINGLE
     Route: 042
     Dates: start: 20181213, end: 20181213
  68. IDELVION [Suspect]
     Active Substance: COAGULATION FACTOR IX RECOMBINANT HUMAN
     Dosage: 2000 INTERNATIONAL UNIT, SINGLE
     Route: 042
     Dates: start: 20190118, end: 20190118
  69. IDELVION [Suspect]
     Active Substance: COAGULATION FACTOR IX RECOMBINANT HUMAN
     Dosage: 2000 INTERNATIONAL UNIT, SINGLE
     Route: 042
     Dates: start: 20190119, end: 20190119
  70. IDELVION [Suspect]
     Active Substance: COAGULATION FACTOR IX RECOMBINANT HUMAN
     Dosage: 2000 INTERNATIONAL UNIT, SINGLE
     Route: 042
     Dates: start: 20190125, end: 20190125
  71. IDELVION [Suspect]
     Active Substance: COAGULATION FACTOR IX RECOMBINANT HUMAN
     Dosage: 1000 INTERNATIONAL UNIT, TOT
     Route: 042
     Dates: start: 20190125, end: 20190125
  72. IDELVION [Suspect]
     Active Substance: COAGULATION FACTOR IX RECOMBINANT HUMAN
     Dosage: 2000 INTERNATIONAL UNIT, SINGLE
     Route: 042
     Dates: start: 20190203, end: 20190203
  73. IDELVION [Suspect]
     Active Substance: COAGULATION FACTOR IX RECOMBINANT HUMAN
     Dosage: 1000 INTERNATIONAL UNIT, TOT
     Route: 042
     Dates: start: 20190211, end: 20190211
  74. IDELVION [Suspect]
     Active Substance: COAGULATION FACTOR IX RECOMBINANT HUMAN
     Dosage: 2000 INTERNATIONAL UNIT, SINGLE
     Route: 042
     Dates: start: 20190222, end: 20190222
  75. IDELVION [Suspect]
     Active Substance: COAGULATION FACTOR IX RECOMBINANT HUMAN
     Dosage: 500 INTERNATIONAL UNIT, SINGLE
     Route: 042
     Dates: start: 20190222, end: 20190222
  76. IDELVION [Suspect]
     Active Substance: COAGULATION FACTOR IX RECOMBINANT HUMAN
     Dosage: 2000 INTERNATIONAL UNIT
     Route: 042
     Dates: start: 20190310, end: 20190310
  77. NOVACT [Concomitant]
     Dosage: 2500 INTERNATIONAL UNIT, 2 DAYS
     Route: 065
     Dates: start: 20180802, end: 20180804
  78. IDELVION [Suspect]
     Active Substance: COAGULATION FACTOR IX RECOMBINANT HUMAN
     Indication: FACTOR IX DEFICIENCY
     Dosage: 3000 INTERNATIONAL UNIT
     Route: 042
  79. IDELVION [Suspect]
     Active Substance: COAGULATION FACTOR IX RECOMBINANT HUMAN
     Indication: HAEMOSTASIS
     Dosage: 2000 INTERNATIONAL UNIT, SINGLE
     Route: 042
     Dates: start: 20181002, end: 20181002
  80. IDELVION [Suspect]
     Active Substance: COAGULATION FACTOR IX RECOMBINANT HUMAN
     Dosage: 500 INTERNATIONAL UNIT, SINGLE
     Route: 042
     Dates: start: 20181022, end: 20181022
  81. IDELVION [Suspect]
     Active Substance: COAGULATION FACTOR IX RECOMBINANT HUMAN
     Dosage: 500 INTERNATIONAL UNIT, SINGLE
     Route: 042
     Dates: start: 20181022, end: 20181022
  82. IDELVION [Suspect]
     Active Substance: COAGULATION FACTOR IX RECOMBINANT HUMAN
     Dosage: 2000 INTERNATIONAL UNIT, SINGLE
     Route: 042
     Dates: start: 20181025, end: 20181025
  83. IDELVION [Suspect]
     Active Substance: COAGULATION FACTOR IX RECOMBINANT HUMAN
     Dosage: 500 INTERNATIONAL UNIT, SINGLE
     Route: 042
     Dates: start: 20181109, end: 20181109
  84. IDELVION [Suspect]
     Active Substance: COAGULATION FACTOR IX RECOMBINANT HUMAN
     Dosage: 2000 INTERNATIONAL UNIT, SINGLE
     Route: 042
     Dates: start: 20181123, end: 20181123
  85. IDELVION [Suspect]
     Active Substance: COAGULATION FACTOR IX RECOMBINANT HUMAN
     Dosage: 2000 INTERNATIONAL UNIT, SINGLE
     Route: 042
     Dates: start: 20181130, end: 20181130
  86. IDELVION [Suspect]
     Active Substance: COAGULATION FACTOR IX RECOMBINANT HUMAN
     Dosage: 1000 INTERNATIONAL UNIT, TOT
     Route: 042
     Dates: start: 20190210, end: 20190210
  87. IDELVION [Suspect]
     Active Substance: COAGULATION FACTOR IX RECOMBINANT HUMAN
     Dosage: UNK
     Route: 042
     Dates: start: 20181226, end: 20181226
  88. IDELVION [Suspect]
     Active Substance: COAGULATION FACTOR IX RECOMBINANT HUMAN
     Indication: FACTOR IX DEFICIENCY
     Dosage: 3000 INTERNATIONAL UNIT
     Route: 042
  89. IDELVION [Suspect]
     Active Substance: COAGULATION FACTOR IX RECOMBINANT HUMAN
     Dosage: 2000 INTERNATIONAL UNIT, SINGLE
     Route: 042
     Dates: start: 20181022, end: 20181022
  90. IDELVION [Suspect]
     Active Substance: COAGULATION FACTOR IX RECOMBINANT HUMAN
     Dosage: 500 INTERNATIONAL UNIT, SINGLE
     Route: 042
     Dates: start: 20181025, end: 20181025
  91. IDELVION [Suspect]
     Active Substance: COAGULATION FACTOR IX RECOMBINANT HUMAN
     Dosage: 500 INTERNATIONAL UNIT, SINGLE
     Route: 042
     Dates: start: 20181109, end: 20181109
  92. IDELVION [Suspect]
     Active Substance: COAGULATION FACTOR IX RECOMBINANT HUMAN
     Dosage: 500 INTERNATIONAL UNIT, SINGLE
     Route: 042
     Dates: start: 20181114, end: 20181114
  93. IDELVION [Suspect]
     Active Substance: COAGULATION FACTOR IX RECOMBINANT HUMAN
     Dosage: 2000 INTERNATIONAL UNIT, SINGLE
     Route: 042
     Dates: start: 20181130, end: 20181130
  94. IDELVION [Suspect]
     Active Substance: COAGULATION FACTOR IX RECOMBINANT HUMAN
     Dosage: 2000 INTERNATIONAL UNIT, SINGLE
     Route: 042
     Dates: start: 20181220, end: 20181220
  95. IDELVION [Suspect]
     Active Substance: COAGULATION FACTOR IX RECOMBINANT HUMAN
     Dosage: 500 INTERNATIONAL UNIT, SINGLE
     Route: 042
     Dates: start: 20190109, end: 20190109
  96. IDELVION [Suspect]
     Active Substance: COAGULATION FACTOR IX RECOMBINANT HUMAN
     Dosage: 2000 INTERNATIONAL UNIT, SINGLE
     Route: 042
     Dates: start: 20190112, end: 20190112
  97. IDELVION [Suspect]
     Active Substance: COAGULATION FACTOR IX RECOMBINANT HUMAN
     Dosage: 500 INTERNATIONAL UNIT, SINGLE
     Route: 042
     Dates: start: 20190112, end: 20190112
  98. IDELVION [Suspect]
     Active Substance: COAGULATION FACTOR IX RECOMBINANT HUMAN
     Dosage: 2000 INTERNATIONAL UNIT, SINGLE
     Route: 042
     Dates: start: 20190118, end: 20190118
  99. IDELVION [Suspect]
     Active Substance: COAGULATION FACTOR IX RECOMBINANT HUMAN
     Dosage: 2000 INTERNATIONAL UNIT, SINGLE
     Route: 042
     Dates: start: 20190119, end: 20190119
  100. IDELVION [Suspect]
     Active Substance: COAGULATION FACTOR IX RECOMBINANT HUMAN
     Dosage: 2000 INTERNATIONAL UNIT, SINGLE
     Route: 042
     Dates: start: 20190203, end: 20190203
  101. IDELVION [Suspect]
     Active Substance: COAGULATION FACTOR IX RECOMBINANT HUMAN
     Dosage: 2000 INTERNATIONAL UNIT, SINGLE
     Route: 042
     Dates: start: 20190210, end: 20190210
  102. IDELVION [Suspect]
     Active Substance: COAGULATION FACTOR IX RECOMBINANT HUMAN
     Dosage: 2000 INTERNATIONAL UNIT, SINGLE
     Route: 042
     Dates: start: 20190211, end: 20190211
  103. IDELVION [Suspect]
     Active Substance: COAGULATION FACTOR IX RECOMBINANT HUMAN
     Dosage: 2000 INTERNATIONAL UNIT, SINGLE
     Route: 042
     Dates: start: 20190301, end: 20190301

REACTIONS (9)
  - Contusion [Recovered/Resolved]
  - Fall [Unknown]
  - Peripheral swelling [Recovered/Resolved]
  - Haemorrhage [Recovering/Resolving]
  - Musculoskeletal pain [Recovered/Resolved]
  - Pain in extremity [Recovered/Resolved]
  - Contusion [Recovering/Resolving]
  - Haemorrhage [Recovering/Resolving]
  - Pain in extremity [Recovered/Resolved]

NARRATIVE: CASE EVENT DATE: 20190211
